FAERS Safety Report 14367959 (Version 1)
Quarter: 2018Q1

REPORT INFORMATION
  Report Type: Spontaneous
  Country: US (occurrence: US)
  Receive Date: 20180109
  Receipt Date: 20180109
  Transmission Date: 20180509
  Serious: No
  Sender: FDA-Public Use
  Company Number: US-ASTRAZENECA-2017SF33146

PATIENT
  Sex: Female
  Weight: 56.7 kg

DRUGS (3)
  1. PROAIR HFA [Concomitant]
     Active Substance: ALBUTEROL SULFATE
     Indication: DYSPNOEA
  2. TUDORZA PRESSAIR [Suspect]
     Active Substance: ACLIDINIUM BROMIDE
     Indication: CHRONIC OBSTRUCTIVE PULMONARY DISEASE
     Route: 055
  3. MUCINEX [Concomitant]
     Active Substance: GUAIFENESIN

REACTIONS (4)
  - Wrong technique in product usage process [Unknown]
  - Nasopharyngitis [Unknown]
  - Product quality issue [Unknown]
  - Drug dose omission [Unknown]
